FAERS Safety Report 6167986-9 (Version None)
Quarter: 2009Q2

REPORT INFORMATION
  Report Type: 
  Country: None (occurrence: None)
  Receive Date: 20090423
  Receipt Date: 20090423
  Transmission Date: 20091009
  Serious: No
  Sender: FDA-Public Use
  Company Number: None

PATIENT
  Age: 27 Year
  Sex: Female
  Weight: 52.1637 kg

DRUGS (6)
  1. CELEXA [Suspect]
     Indication: DEPRESSION
     Dosage: 20MG ONCE DAILY PO
     Route: 048
     Dates: start: 20010730, end: 20031030
  2. CELEXA [Suspect]
     Indication: DEPRESSION
     Dosage: 20MG ONCE DAILY PO
     Route: 048
     Dates: start: 20090220, end: 20090421
  3. CANASA SUPPOSITORIES [Concomitant]
  4. ROWASA ENEMAS [Concomitant]
  5. STEROIDS [Concomitant]
  6. ASACOL [Concomitant]

REACTIONS (1)
  - COLITIS ULCERATIVE [None]
